FAERS Safety Report 8843501 (Version 2)
Quarter: 2013Q4

REPORT INFORMATION
  Report Type: Spontaneous
  Country: CA (occurrence: CA)
  Receive Date: 20121016
  Receipt Date: 20131118
  Transmission Date: 20140711
  Serious: Yes (Other)
  Sender: FDA-Public Use
  Company Number: CA-ELI_LILLY_AND_COMPANY-CA201210001924

PATIENT
  Age: 68 Year
  Sex: Female

DRUGS (8)
  1. HUMALOG LISPRO [Suspect]
     Indication: PRODUCT USED FOR UNKNOWN INDICATION
     Dosage: 2 U, PRN
     Route: 065
  2. LANTUS [Suspect]
     Indication: PRODUCT USED FOR UNKNOWN INDICATION
     Dosage: 20 U, EACH MORNING
     Route: 065
     Dates: start: 200606
  3. LANTUS [Suspect]
     Dosage: 18 U, EACH MORNING
     Route: 065
  4. LANTUS [Suspect]
     Dosage: UNK UNK, UNKNOWN
     Route: 065
  5. ANTIHYPERTENSIVES [Concomitant]
  6. LIPID MODIFYING AGENTS [Concomitant]
  7. DIURETICS [Concomitant]
  8. THYROID THERAPY [Concomitant]

REACTIONS (5)
  - Blood glucose abnormal [Recovering/Resolving]
  - Hyperglycaemia [Not Recovered/Not Resolved]
  - Wrong drug administered [Not Recovered/Not Resolved]
  - Wrong technique in drug usage process [Recovered/Resolved]
  - Hypoglycaemia [Not Recovered/Not Resolved]
